FAERS Safety Report 7714622-3 (Version None)
Quarter: 2011Q3

REPORT INFORMATION
  Report Type: 
  Country: None (occurrence: None)
  Receive Date: 20110829
  Receipt Date: 20110825
  Transmission Date: 20111222
  Serious: No
  Sender: FDA-Public Use
  Company Number: US-PFIZER INC-2011198626

PATIENT
  Sex: Female
  Weight: 64.9 kg

DRUGS (7)
  1. MORPHINE [Concomitant]
     Indication: PAIN
     Dosage: UNK
  2. HYDROCHLOROTHIAZIDE [Concomitant]
     Indication: HYPERTENSION
     Dosage: UNK
  3. LYRICA [Suspect]
     Dosage: 50 MG, 2X/DAY
     Route: 048
     Dates: start: 20110824, end: 20110824
  4. NEXIUM [Concomitant]
     Dosage: UNK
  5. LYRICA [Suspect]
     Indication: NEURALGIA
     Dosage: 50 MG, 1X/DAY
     Route: 048
     Dates: start: 20110818, end: 20110823
  6. ULTRAM [Concomitant]
     Indication: PAIN
     Dosage: UNK
  7. VALIUM [Concomitant]
     Dosage: UNK

REACTIONS (4)
  - OEDEMA PERIPHERAL [None]
  - PAIN IN EXTREMITY [None]
  - HEADACHE [None]
  - BACK PAIN [None]
